FAERS Safety Report 7601591-X (Version None)
Quarter: 2011Q3

REPORT INFORMATION
  Report Type: 
  Country: None (occurrence: None)
  Receive Date: 20110711
  Receipt Date: 20110701
  Transmission Date: 20111222
  Serious: Yes (Other)
  Sender: FDA-Public Use
  Company Number: PHHY2011US48530

PATIENT
  Sex: Male
  Weight: 136.5 kg

DRUGS (5)
  1. GILENYA [Suspect]
     Dosage: 0.5 MG, QD
     Route: 048
     Dates: start: 20110504, end: 20110518
  2. BACLOFEN [Concomitant]
     Dosage: UNK UKN, UNK
     Route: 048
  3. COUMADIN [Concomitant]
     Dosage: UNK UKN, UNK
     Route: 048
  4. GILENYA [Suspect]
     Indication: RELAPSING-REMITTING MULTIPLE SCLEROSIS
     Dosage: 0.5 MG, QD
     Route: 048
     Dates: start: 20110411, end: 20110425
  5. FAMPRIDINE [Concomitant]
     Indication: MULTIPLE SCLEROSIS
     Dosage: UNK UKN, UNK
     Route: 048

REACTIONS (5)
  - VITREOUS FLOATERS [None]
  - LACRIMATION INCREASED [None]
  - CATARACT [None]
  - VISUAL IMPAIRMENT [None]
  - EYE PAIN [None]
